FAERS Safety Report 6601764-9 (Version None)
Quarter: 2010Q1

REPORT INFORMATION
  Report Type: 
  Country: None (occurrence: None)
  Receive Date: 20100225
  Receipt Date: 20081215
  Transmission Date: 20100710
  Serious: No
  Sender: FDA-Public Use
  Company Number: US-BRISTOL-MYERS SQUIBB COMPANY-14443162

PATIENT
  Age: 63 Year
  Sex: Female
  Weight: 82 kg

DRUGS (7)
  1. ORENCIA [Suspect]
     Indication: RHEUMATOID ARTHRITIS
     Dosage: RECEIVED 4 MONTHLY INFUSIONS WITH LAST ONE 08/28/2008 TAKEN (3 VIALS)
     Route: 042
     Dates: start: 20080501
  2. METHOTREXATE [Concomitant]
     Dates: end: 20080821
  3. MELOXICAM [Concomitant]
  4. PREDNISONE [Concomitant]
  5. EVOXAC [Concomitant]
  6. GABAPENTIN [Concomitant]
  7. TIZANIDINE HCL [Concomitant]

REACTIONS (1)
  - MOUTH ULCERATION [None]
